FAERS Safety Report 6119332-4 (Version None)
Quarter: 2009Q1

REPORT INFORMATION
  Report Type: 
  Country: None (occurrence: None)
  Receive Date: 20090316
  Receipt Date: 20090313
  Transmission Date: 20090719
  Serious: Yes (Death, Hospitalization)
  Sender: FDA-Public Use
  Company Number: PHEH2008US11434

PATIENT
  Sex: Female
  Weight: 55.329 kg

DRUGS (4)
  1. EXJADE [Suspect]
     Indication: MYELODYSPLASTIC SYNDROME
     Dosage: 1000 MG, QD
     Route: 048
     Dates: start: 20081117, end: 20081125
  2. EXJADE [Suspect]
     Indication: IRON OVERLOAD
  3. ACYCLOVIR [Concomitant]
     Indication: PROPHYLAXIS
     Dosage: 200 MG, BID
     Dates: start: 20071001, end: 20081221
  4. DIFLUCAN [Concomitant]
     Indication: PROPHYLAXIS
     Dosage: 50 MG, QD
     Dates: start: 20071001, end: 20081221

REACTIONS (5)
  - BLAST CELL CRISIS [None]
  - DISEASE PROGRESSION [None]
  - HAEMORRHAGE INTRACRANIAL [None]
  - PYREXIA [None]
  - SEPSIS [None]
